FAERS Safety Report 10259665 (Version 1)
Quarter: 2014Q2

REPORT INFORMATION
  Report Type: Report from Study
  Country: CA (occurrence: CA)
  Receive Date: 20140625
  Receipt Date: 20140625
  Transmission Date: 20141212
  Serious: Yes (Other)
  Sender: FDA-Public Use
  Company Number: CA-BRISTOL-MYERS SQUIBB COMPANY-21076500

PATIENT
  Age: 73 Year
  Sex: Female

DRUGS (7)
  1. ORENCIA FOR INJ [Suspect]
     Indication: RHEUMATOID ARTHRITIS
     Dosage: LAST INFUSION WAS 16JUN14
     Route: 042
     Dates: start: 20130125
  2. METOPROLOL [Concomitant]
  3. EZETROL [Concomitant]
  4. TECTA [Concomitant]
  5. ARAVA [Concomitant]
  6. SIMVASTATIN [Concomitant]
  7. ASPIRIN [Concomitant]

REACTIONS (1)
  - Angina pectoris [Recovered/Resolved]
